FAERS Safety Report 8546171-7 (Version None)
Quarter: 2012Q3

REPORT INFORMATION
  Report Type: 
  Country: None (occurrence: None)
  Receive Date: 20120727
  Receipt Date: 20120718
  Transmission Date: 20120928
  Serious: Yes (Other)
  Sender: FDA-Public Use
  Company Number: US-ASTRAZENECA-2012SE50931

PATIENT
  Age: 61 Year
  Sex: Male

DRUGS (1)
  1. NEXIUM [Suspect]
     Route: 048

REACTIONS (6)
  - BARRETT'S OESOPHAGUS [None]
  - DIABETES MELLITUS [None]
  - OSTEOPOROSIS [None]
  - MYOCARDIAL INFARCTION [None]
  - GASTRIC PERFORATION [None]
  - HIATUS HERNIA [None]
